FAERS Safety Report 7070872-3 (Version None)
Quarter: 2010Q4

REPORT INFORMATION
  Report Type: 
  Country: None (occurrence: None)
  Receive Date: 20101029
  Receipt Date: 20100518
  Transmission Date: 20110411
  Serious: Yes (Death)
  Sender: FDA-Public Use
  Company Number: VE-PFIZER INC-2010136864

PATIENT
  Age: 57 Year
  Sex: Male

DRUGS (2)
  1. CADUET [Suspect]
     Indication: HYPERCHOLESTEROLAEMIA
     Dosage: 5MG / 40MG DAILY
     Route: 048
  2. CADUET [Suspect]
     Indication: HYPERTRIGLYCERIDAEMIA

REACTIONS (1)
  - DEATH [None]
